FAERS Safety Report 6982019-X (Version None)
Quarter: 2010Q3

REPORT INFORMATION
  Report Type: 
  Country: None (occurrence: None)
  Receive Date: 20100914
  Receipt Date: 20091208
  Transmission Date: 20110219
  Serious: No
  Sender: FDA-Public Use
  Company Number: US-PFIZER INC-2009290835

PATIENT
  Age: 55 Year
  Sex: Male

DRUGS (1)
  1. LYRICA [Suspect]
     Dosage: 75 MG, UNK
     Route: 048

REACTIONS (2)
  - LIP BLISTER [None]
  - LIP SWELLING [None]
